FAERS Safety Report 19706666 (Version 1)
Quarter: 2021Q3

REPORT INFORMATION
  Report Type: Spontaneous
  Country: DE (occurrence: DE)
  Receive Date: 20210817
  Receipt Date: 20210817
  Transmission Date: 20211014
  Serious: Yes (Hospitalization, Other)
  Sender: FDA-Public Use
  Company Number: DE-TEVA-2021-DE-1941802

PATIENT
  Age: 77 Year
  Sex: Female
  Weight: 64 kg

DRUGS (11)
  1. APIXABAN [Concomitant]
     Active Substance: APIXABAN
     Dosage: 2.5 MG, 1?0?1?0, UNIT DOSE: 25 MG
  2. ATORVASTATIN [Concomitant]
     Active Substance: ATORVASTATIN
     Dosage: 40 MILLIGRAM DAILY; 0?0?1?0
  3. INSULIN GLULISIN [Concomitant]
     Active Substance: INSULIN GLULISINE
     Dosage: 300 IU, ACCORDING TO THE SCHEME
  4. TORASEMID [Suspect]
     Active Substance: TORSEMIDE
     Dosage: 30 MILLIGRAM DAILY; 20 MG, 1?0.5?0?0
     Route: 065
  5. INSULIN GLARGIN/LIXISENATID [Concomitant]
     Dosage: 450 IE, 0?0?24?0, 24 IU
  6. CETIRIZIN [Concomitant]
     Active Substance: CETIRIZINE HYDROCHLORIDE
     Dosage: 20 MILLIGRAM DAILY; 1?0?1?0
  7. LEVOTHYROXIN?NATRIUM [Concomitant]
     Active Substance: LEVOTHYROXINE SODIUM
     Dosage: 175 MICROGRAM DAILY; 1?0?0?0
  8. ACETYLSALICYLSAURE [Concomitant]
     Active Substance: ASPIRIN
     Dosage: 100 MILLIGRAM DAILY; 1?0?0?0
  9. HYDROCHLOROTHIAZID [Suspect]
     Active Substance: HYDROCHLOROTHIAZIDE
     Dosage: 25 MILLIGRAM DAILY; 1?0?0?0
     Route: 065
  10. RAMIPRIL. [Suspect]
     Active Substance: RAMIPRIL
     Dosage: 5 MILLIGRAM DAILY; 1?0?1?0
     Route: 065
  11. SPIRONOLACTON [Suspect]
     Active Substance: SPIRONOLACTONE
     Dosage: 50 MILLIGRAM DAILY; 1?0?0?0
     Route: 065

REACTIONS (3)
  - Dehydration [Unknown]
  - Hyponatraemia [Unknown]
  - Syncope [Unknown]
